FAERS Safety Report 8895436 (Version 1)
Quarter: 2012Q4

REPORT INFORMATION
  Report Type: 
  Country: US (occurrence: US)
  Receive Date: 20121107
  Receipt Date: 20121107
  Transmission Date: 20130627
  Serious: Yes (Other)
  Sender: FDA-Public Use
  Company Number: CHPA2012US023007

PATIENT
  Age: 86 Year
  Sex: Male

DRUGS (4)
  1. EXCEDRIN EXTRA STRENGTH [Suspect]
     Indication: NERVOUSNESS
     Dosage: 1 DF, UNK
     Route: 048
     Dates: start: 200612
  2. LUPRON [Concomitant]
     Indication: PROSTATE CANCER
     Dosage: 3 injections, 3 or 4 months apart
     Dates: start: 200702
  3. RADIATION THERAPY [Concomitant]
     Indication: PROSTATE CANCER
     Dosage: UNK, weekdays
     Dates: start: 200703, end: 200705
  4. RADIATION THERAPY [Concomitant]
     Dosage: UNK, UNK
     Dates: start: 200707

REACTIONS (3)
  - Aortic aneurysm [Recovered/Resolved]
  - Off label use [Unknown]
  - Underdose [Unknown]
